FAERS Safety Report 5004075-0 (Version None)
Quarter: 2006Q2

REPORT INFORMATION
  Report Type: 
  Country: None (occurrence: None)
  Receive Date: 20060511
  Receipt Date: 20060428
  Transmission Date: 20061013
  Serious: Yes (Hospitalization, Other)
  Sender: FDA-Public Use
  Company Number: 2006058008

PATIENT
  Age: 53 Year
  Sex: Male
  Weight: 102.9665 kg

DRUGS (6)
  1. SUTENT [Suspect]
     Indication: METASTATIC RENAL CELL CARCINOMA
     Dosage: 50 MG (50 MG, DAILY INTERVAL: EVERY DAY), ORAL
     Route: 048
  2. QUINAPRIL [Concomitant]
  3. ASPIRIN [Concomitant]
  4. CONTIN (MORPHINE SULFATE) [Concomitant]
  5. HYDROCHLOROTHIAZIDE [Concomitant]
  6. LIPITOR [Concomitant]

REACTIONS (3)
  - HYPOTENSION [None]
  - MENTAL STATUS CHANGES [None]
  - TACHYCARDIA [None]
